FAERS Safety Report 12333905 (Version 2)
Quarter: 2016Q4

REPORT INFORMATION
  Report Type: Spontaneous
  Country: US (occurrence: US)
  Receive Date: 20160504
  Receipt Date: 20161013
  Transmission Date: 20170207
  Serious: No
  Sender: FDA-Public Use
  Company Number: US-ROCHE-1701627

PATIENT
  Age: 70 Year
  Sex: Female

DRUGS (1)
  1. ESBRIET [Suspect]
     Active Substance: PIRFENIDONE
     Indication: IDIOPATHIC PULMONARY FIBROSIS
     Dosage: ON 10/SEP/2015, SAME DOSE WAS ADMINISTERED.
     Route: 048
     Dates: start: 20150909

REACTIONS (3)
  - Gastrointestinal disorder [Unknown]
  - Swelling [Unknown]
  - Retching [Unknown]

NARRATIVE: CASE EVENT DATE: 20160121
